FAERS Safety Report 19775468 (Version 1)
Quarter: 2021Q3

REPORT INFORMATION
  Report Type: Spontaneous
  Country: DE (occurrence: DE)
  Receive Date: 20210901
  Receipt Date: 20210901
  Transmission Date: 20211014
  Serious: Yes (Other)
  Sender: FDA-Public Use
  Company Number: DE-ASTELLAS-2021US032028

PATIENT
  Sex: Female

DRUGS (3)
  1. BETMIGA [Suspect]
     Active Substance: MIRABEGRON
     Dosage: 0.5 DF, EVERY OTHER DAY
     Route: 065
  2. BETMIGA [Suspect]
     Active Substance: MIRABEGRON
     Indication: PRODUCT USED FOR UNKNOWN INDICATION
     Route: 065
  3. BETMIGA [Suspect]
     Active Substance: MIRABEGRON
     Dosage: 0.5 DF, ONCE DAILY
     Route: 065

REACTIONS (7)
  - Headache [Unknown]
  - Gastritis [Unknown]
  - Product odour abnormal [Unknown]
  - Drug intolerance [Unknown]
  - Cystitis [Unknown]
  - Dizziness [Unknown]
  - Wrong technique in product usage process [Unknown]
